FAERS Safety Report 5801675-2 (Version None)
Quarter: 2008Q3

REPORT INFORMATION
  Report Type: 
  Country: None (occurrence: None)
  Receive Date: 20080707
  Receipt Date: 20080701
  Transmission Date: 20090109
  Serious: Yes (Hospitalization)
  Sender: FDA-Public Use
  Company Number: B0523244A

PATIENT
  Age: 76 Year
  Sex: Female
  Weight: 47 kg

DRUGS (10)
  1. ARIXTRA [Suspect]
     Indication: THROMBOSIS PROPHYLAXIS
     Dosage: 2.5MG PER DAY
     Route: 058
     Dates: start: 20080408, end: 20080421
  2. NU-LOTAN [Concomitant]
     Indication: HYPERTENSION
     Dosage: 25MG PER DAY
     Route: 048
     Dates: start: 20080508, end: 20080528
  3. LEVOTHYROXINE SODIUM [Concomitant]
     Indication: HYPOTHYROIDISM
     Dosage: 50MCG PER DAY
     Route: 048
     Dates: start: 20080508, end: 20080528
  4. FERROMIA [Concomitant]
     Dosage: 100MG TWICE PER DAY
     Route: 048
     Dates: start: 20080508
  5. MAGNESIUM OXIDE [Concomitant]
     Dosage: .33G TWICE PER DAY
     Route: 048
     Dates: start: 20080508, end: 20080528
  6. DIAZEPAM [Concomitant]
     Dosage: 2MG TWICE PER DAY
     Route: 048
     Dates: start: 20080508, end: 20080528
  7. SELBEX [Concomitant]
     Dosage: .5G TWICE PER DAY
     Route: 048
     Dates: start: 20080508, end: 20080528
  8. COMELIAN [Concomitant]
     Dosage: 100MG TWICE PER DAY
     Route: 048
     Dates: start: 20080508, end: 20080528
  9. TOFRANIL [Concomitant]
     Dosage: 10MG PER DAY
     Route: 048
     Dates: start: 20080508, end: 20080528
  10. MINOMYCIN [Concomitant]
     Dosage: 100MG PER DAY
     Route: 048
     Dates: start: 20080528

REACTIONS (2)
  - ANAEMIA [None]
  - GASTROINTESTINAL HAEMORRHAGE [None]
